FAERS Safety Report 9189282 (Version 2)
Quarter: 2013Q2

REPORT INFORMATION
  Report Type: Spontaneous
  Country: DE (occurrence: None)
  Receive Date: 20120702
  Receipt Date: 20130225
  Transmission Date: 20140414
  Serious: Yes (Hospitalization)
  Sender: FDA-Public Use
  Company Number: 2011-524

PATIENT
  Age: 48 Year
  Sex: Female
  Weight: 60 kg

DRUGS (10)
  1. PRIALT [Suspect]
     Indication: PAIN
     Route: 037
     Dates: start: 20080930, end: 20081111
  2. PRIALT [Suspect]
     Indication: PAIN
     Route: 037
     Dates: start: 20080930, end: 20081111
  3. TOPAMAX (TOPIRAMATE) [Concomitant]
  4. MORPHINE SULFATE (MORPHINE SULFATE) INJECTION [Concomitant]
  5. FENTANYL (FENTANYL) [Concomitant]
  6. TREVILOR (VENLAFAXINE HYDROCHLORIDE) [Concomitant]
  7. PANTOZOL/01263204/(PANTOPRAZOLE SODIUM SESQUIHYDRATE) [Concomitant]
  8. BISOPROLOL (BISPROLOL) [Concomitant]
  9. HCT (HYDROCHLOROTHIAZIDE) [Concomitant]
  10. MARCUMAR (PHENPROCOUMON) [Concomitant]

REACTIONS (1)
  - Mental disorder [None]
